FAERS Safety Report 16895042 (Version 1)
Quarter: 2019Q4

REPORT INFORMATION
  Report Type: Spontaneous
  Country: GB (occurrence: GB)
  Receive Date: 20191008
  Receipt Date: 20191008
  Transmission Date: 20200122
  Serious: Yes (Hospitalization)
  Sender: FDA-Public Use
  Company Number: GB-MYLANLABS-2019M1092684

PATIENT
  Age: 4 Year
  Sex: Male

DRUGS (5)
  1. AMBISOME [Concomitant]
     Active Substance: AMPHOTERICIN B
     Indication: CANDIDA INFECTION
     Dosage: 5 MILLIGRAM/KILOGRAM
  2. VORICONAZOLE. [Concomitant]
     Active Substance: VORICONAZOLE
  3. VORICONAZOLE. [Suspect]
     Active Substance: VORICONAZOLE
     Indication: ASPERGILLUS INFECTION
  4. FLUCONAZOLE. [Concomitant]
     Active Substance: FLUCONAZOLE
     Indication: CANDIDA INFECTION
  5. PHENOBARBITONE                     /00023201/ [Interacting]
     Active Substance: PHENOBARBITAL
     Indication: SEIZURE

REACTIONS (2)
  - Drug interaction [Recovered/Resolved]
  - Therapeutic response decreased [Recovered/Resolved]
